FAERS Safety Report 25049107 (Version 1)
Quarter: 2025Q1

REPORT INFORMATION
  Report Type: Spontaneous
  Country: FR (occurrence: FR)
  Receive Date: 20250307
  Receipt Date: 20250307
  Transmission Date: 20250409
  Serious: Yes (Other)
  Sender: JOHNSON AND JOHNSON
  Company Number: FR-JNJFOC-20250314687

PATIENT
  Age: 39 Year
  Sex: Male

DRUGS (2)
  1. HALOPERIDOL [Suspect]
     Active Substance: HALOPERIDOL
     Indication: Medication error
     Route: 048
     Dates: start: 20250205, end: 20250205
  2. XANAX [Suspect]
     Active Substance: ALPRAZOLAM
     Indication: Product used for unknown indication
     Route: 065

REACTIONS (3)
  - Wrong product administered [Recovered/Resolved]
  - Extrapyramidal disorder [Recovered/Resolved]
  - Hyperleukocytosis [Recovered/Resolved]

NARRATIVE: CASE EVENT DATE: 20250205
